FAERS Safety Report 8557827-4 (Version None)
Quarter: 2012Q3

REPORT INFORMATION
  Report Type: 
  Country: None (occurrence: None)
  Receive Date: 20120801
  Receipt Date: 20120309
  Transmission Date: 20120928
  Serious: Yes (Other)
  Sender: FDA-Public Use
  Company Number: US-GLAXOSMITHKLINE-A0969236A

PATIENT
  Age: 43 Year
  Sex: Female
  Weight: 56.8 kg

DRUGS (4)
  1. TYKERB [Suspect]
     Indication: PRODUCT USED FOR UNKNOWN INDICATION
     Dosage: 1000MG PER DAY
     Route: 048
     Dates: start: 20111006, end: 20120222
  2. HERCEPTIN [Concomitant]
     Dosage: 2MGK CONTINUOUS
     Route: 042
     Dates: start: 20080623
  3. ZOMETA [Concomitant]
     Dosage: 4MG MONTHLY
     Route: 042
     Dates: start: 20111118, end: 20120330
  4. ZOLADEX [Concomitant]
     Dosage: 3.6MG UNKNOWN
     Route: 058
     Dates: start: 20111209, end: 20120316

REACTIONS (4)
  - ASPARTATE AMINOTRANSFERASE INCREASED [None]
  - OSTEOLYSIS [None]
  - HEPATIC STEATOSIS [None]
  - ALANINE AMINOTRANSFERASE INCREASED [None]
